FAERS Safety Report 9003816 (Version 1)
Quarter: 2013Q1

REPORT INFORMATION
  Report Type: Spontaneous
  Country: US (occurrence: US)
  Receive Date: 20130108
  Receipt Date: 20130108
  Transmission Date: 20140127
  Serious: No
  Sender: FDA-Public Use
  Company Number: US-GLAXOSMITHKLINE-A0986971A

PATIENT
  Age: 71 Year
  Sex: Female

DRUGS (14)
  1. LOVAZA [Suspect]
     Indication: CARDIAC DISORDER
     Dosage: 2CAP TWICE PER DAY
     Route: 048
     Dates: start: 201206
  2. SPIRIVA [Concomitant]
  3. PRO-AIR [Concomitant]
  4. LIPITOR [Concomitant]
  5. CELEBREX [Concomitant]
  6. GLUCOTROL [Concomitant]
  7. OMEPRAZOLE [Concomitant]
  8. NEXIUM [Concomitant]
  9. IMDUR [Concomitant]
  10. TOPROL [Concomitant]
  11. CITALOPRAM [Concomitant]
  12. CALCIUM [Concomitant]
  13. AVAPRO [Concomitant]
  14. GLUCOSAMINE [Concomitant]

REACTIONS (2)
  - Oral discomfort [Unknown]
  - Thermal burn [Unknown]
